FAERS Safety Report 4418171-X (Version None)
Quarter: 2004Q3

REPORT INFORMATION
  Report Type: 
  Country: None (occurrence: None)
  Receive Date: 20040809
  Receipt Date: 20031218
  Transmission Date: 20050211
  Serious: No
  Sender: FDA-Public Use
  Company Number: US-GLAXOSMITHKLINE-A0443662A

PATIENT
  Sex: Female

DRUGS (4)
  1. PAXIL [Suspect]
     Indication: ANXIETY
     Dosage: 25MG PER DAY
     Route: 048
  2. ATIVAN [Concomitant]
  3. LANOXIN [Concomitant]
  4. PRILOSEC [Concomitant]

REACTIONS (1)
  - WEIGHT INCREASED [None]
